FAERS Safety Report 6348178-7 (Version None)
Quarter: 2009Q3

REPORT INFORMATION
  Report Type: 
  Country: None (occurrence: None)
  Receive Date: 20090908
  Receipt Date: 20090824
  Transmission Date: 20100115
  Serious: Yes (Life-Threatening, Hospitalization)
  Sender: FDA-Public Use
  Company Number: RENA-1000501

PATIENT
  Age: 55 Year
  Sex: Male
  Weight: 65.3 kg

DRUGS (8)
  1. RENAGEL [Suspect]
     Indication: HYPERPHOSPHATAEMIA
     Dosage: 2.5 G, TID, ORAL
     Route: 048
     Dates: start: 20060125, end: 20090617
  2. LOXONIN (LOXOPROFEN SODIUM) TABLET [Suspect]
     Indication: BACK PAIN
     Dosage: 60 MG, PRN, ORAL
     Route: 048
     Dates: start: 20080922
  3. PANTOSIN (PANTETHINE) TABLET [Concomitant]
  4. ALLOPURINOL [Concomitant]
  5. ADALAT (NIFEDIPINE) TABLET [Concomitant]
  6. DIOVAN [Concomitant]
  7. DOXAZOSIN MESYLATE [Concomitant]
  8. REGPARA (CINACALCET HYDROCHLORIDE) TABLET [Concomitant]

REACTIONS (11)
  - ANASTOMOTIC COMPLICATION [None]
  - BACK PAIN [None]
  - DIVERTICULAR PERFORATION [None]
  - DIVERTICULITIS [None]
  - DIVERTICULUM INTESTINAL HAEMORRHAGIC [None]
  - GASTROINTESTINAL HAEMORRHAGE [None]
  - HYPERPARATHYROIDISM SECONDARY [None]
  - HYPERTENSION [None]
  - PEPTIC ULCER [None]
  - PERITONITIS [None]
  - SMALL INTESTINAL HAEMORRHAGE [None]
